FAERS Safety Report 26075248 (Version 1)
Quarter: 2025Q4

REPORT INFORMATION
  Report Type: Other
  Country: US (occurrence: US)
  Receive Date: 20251121
  Receipt Date: 20251121
  Transmission Date: 20260117
  Serious: Yes (Hospitalization, Other)
  Sender: VERASTEM
  Company Number: US-VERASTEM-251009US-AFCPK-00671

PATIENT

DRUGS (1)
  1. AVMAPKI FAKZYNJA CO-PACK [Suspect]
     Active Substance: AVUTOMETINIB POTASSIUM\DEFACTINIB HYDROCHLORIDE
     Indication: Ovarian cancer
     Dosage: AVMAPKI 3.2MG TWICE WEEKLY  ON DAYS 1 AND 4 FOR 3 WEEKS OF 4-WEEK CYCLE, FAKZYNJA 200MG ORALLY TWICE
     Route: 048
     Dates: start: 20250602

REACTIONS (2)
  - Pulmonary oedema [Unknown]
  - Pulmonary mass [Unknown]
